FAERS Safety Report 15080004 (Version 1)
Quarter: 2018Q2

REPORT INFORMATION
  Report Type: Spontaneous
  Country: US (occurrence: US)
  Receive Date: 20180607
  Receipt Date: 20180607
  Transmission Date: 20180711
  Serious: Yes (Disabling)
  Sender: FDA-Public Use
  Company Number: None

PATIENT
  Age: 72 Year
  Sex: Female
  Weight: 88 kg

DRUGS (11)
  1. LOSARTAN. [Concomitant]
     Active Substance: LOSARTAN
  2. FOLIC ACID. [Concomitant]
     Active Substance: FOLIC ACID
  3. TOPROL XL [Concomitant]
     Active Substance: METOPROLOL SUCCINATE
  4. VITAMIN B12 [Concomitant]
     Active Substance: CYANOCOBALAMIN
  5. VITAMIN D3 [Concomitant]
     Active Substance: CHOLECALCIFEROL
  6. PRAVASTATIN. [Concomitant]
     Active Substance: PRAVASTATIN
  7. BYDUREON [Suspect]
     Active Substance: EXENATIDE
     Indication: DIABETES MELLITUS
     Dates: start: 20180320, end: 20180501
  8. RANITIDINE. [Concomitant]
     Active Substance: RANITIDINE
  9. FLAXSEED [Concomitant]
     Active Substance: FLAX SEED
  10. VICTOZA [Concomitant]
     Active Substance: LIRAGLUTIDE
  11. CALCIUM +D [Concomitant]
     Active Substance: CALCIUM\VITAMIN D

REACTIONS (9)
  - Gastrointestinal pain [None]
  - Nausea [None]
  - Vomiting [None]
  - Diarrhoea [None]
  - Abdominal discomfort [None]
  - Abdominal pain upper [None]
  - Gastrointestinal disorder [None]
  - Drug intolerance [None]
  - Epigastric discomfort [None]

NARRATIVE: CASE EVENT DATE: 20180320
